FAERS Safety Report 22183805 (Version 2)
Quarter: 2023Q2

REPORT INFORMATION
  Report Type: Spontaneous
  Country: JP (occurrence: JP)
  Receive Date: 20230406
  Receipt Date: 20230504
  Transmission Date: 20230721
  Serious: No
  Sender: FDA-Public Use
  Company Number: JP-AMGEN-JPNSP2023058579

PATIENT

DRUGS (3)
  1. EVENITY [Suspect]
     Active Substance: ROMOSOZUMAB-AQQG
     Indication: Osteoporosis
     Dosage: 210 MILLIGRAM, QMO
     Route: 058
  2. ELDECALCITOL [Concomitant]
     Active Substance: ELDECALCITOL
     Dosage: UNK
  3. ALFACALCIDOL [Concomitant]
     Active Substance: ALFACALCIDOL
     Dosage: UNK

REACTIONS (1)
  - Blood calcium decreased [Unknown]
